FAERS Safety Report 16788658 (Version 4)
Quarter: 2021Q2

REPORT INFORMATION
  Report Type: Report from Study
  Country: US (occurrence: US)
  Receive Date: 20190910
  Receipt Date: 20210519
  Transmission Date: 20210716
  Serious: No
  Sender: FDA-Public Use
  Company Number: PHEH2019US037048

PATIENT
  Sex: Female

DRUGS (3)
  1. AFINITOR [Suspect]
     Active Substance: EVEROLIMUS
     Indication: TUBERCULOSIS
     Dosage: 30 MG, QD
     Route: 048
  2. JUICE PLUS [Interacting]
     Active Substance: DIETARY SUPPLEMENT
     Indication: PRODUCT USED FOR UNKNOWN INDICATION
     Dosage: UNK
     Route: 065
  3. AFINITOR [Suspect]
     Active Substance: EVEROLIMUS
     Dosage: 25 UNK
     Route: 048

REACTIONS (7)
  - Drug interaction [Unknown]
  - Oedema peripheral [Unknown]
  - Pyrexia [Unknown]
  - Cough [Unknown]
  - Product dose omission issue [Unknown]
  - Drug level above therapeutic [Unknown]
  - Drug ineffective [Unknown]
